FAERS Safety Report 7961218-4 (Version None)
Quarter: 2011Q4

REPORT INFORMATION
  Report Type: 
  Country: None (occurrence: None)
  Receive Date: 20111202
  Receipt Date: 20111129
  Transmission Date: 20120403
  Serious: Yes (Hospitalization, Other)
  Sender: FDA-Public Use
  Company Number: ADR-2011-11431

PATIENT
  Age: 8 Year
  Sex: Male

DRUGS (1)
  1. LIORESAL [Suspect]

REACTIONS (12)
  - DEVICE OCCLUSION [None]
  - SKIN INFECTION [None]
  - HYPERHIDROSIS [None]
  - DEVICE RELATED INFECTION [None]
  - IMPLANT SITE INFECTION [None]
  - DRUG WITHDRAWAL SYNDROME [None]
  - DEVICE MALFUNCTION [None]
  - PRURITUS [None]
  - NO THERAPEUTIC RESPONSE [None]
  - IMPLANT SITE REACTION [None]
  - LIMB DISCOMFORT [None]
  - MUSCULOSKELETAL STIFFNESS [None]
